FAERS Safety Report 10235029 (Version 2)
Quarter: 2014Q3

REPORT INFORMATION
  Report Type: Spontaneous
  Country: VE (occurrence: VE)
  Receive Date: 20140613
  Receipt Date: 20140721
  Transmission Date: 20150326
  Serious: Yes (Hospitalization)
  Sender: FDA-Public Use
  Company Number: PHHY2014VE072937

PATIENT
  Age: 1 Year
  Sex: Male
  Weight: 20 kg

DRUGS (2)
  1. RIPEVIL [Concomitant]
     Indication: PSYCHOMOTOR HYPERACTIVITY
     Dosage: 3 MG, UNK
     Dates: start: 20120507
  2. TEGRETOL [Suspect]
     Active Substance: CARBAMAZEPINE
     Indication: PARTIAL SEIZURES
     Dosage: 6 ML, DAILY
     Route: 048
     Dates: start: 20120507

REACTIONS (3)
  - Respiratory tract infection [Recovered/Resolved]
  - Pyrexia [Recovered/Resolved]
  - Convulsion [Recovered/Resolved]

NARRATIVE: CASE EVENT DATE: 201305
